FAERS Safety Report 21006581 (Version 1)
Quarter: 2022Q2

REPORT INFORMATION
  Report Type: Report from Study
  Country: PT (occurrence: PT)
  Receive Date: 20220624
  Receipt Date: 20220624
  Transmission Date: 20220721
  Serious: Yes (Other)
  Sender: FDA-Public Use
  Company Number: PT-CELLTRION INC.-2022PT009619

PATIENT

DRUGS (5)
  1. RITUXIMAB [Suspect]
     Active Substance: RITUXIMAB
     Indication: Chronic lymphocytic leukaemia
     Dosage: UNK
     Route: 065
     Dates: start: 20150827
  2. IDELALISIB [Suspect]
     Active Substance: IDELALISIB
     Indication: Chronic lymphocytic leukaemia
     Dosage: 150 MG, EVERY 12 HOURS (150 MG, BID)
     Route: 065
     Dates: start: 20150827, end: 20160902
  3. IDELALISIB [Suspect]
     Active Substance: IDELALISIB
     Dosage: UNK
     Route: 065
     Dates: start: 20160916
  4. PANTOPRAZOLE [Concomitant]
     Active Substance: PANTOPRAZOLE
     Indication: Gastritis
     Dosage: 40, UNK
     Route: 048
     Dates: start: 20140101
  5. FENTANYL [Concomitant]
     Active Substance: FENTANYL
     Indication: Pain
     Dosage: 25, UNK
     Route: 062
     Dates: start: 20160318

REACTIONS (2)
  - Neutropenia [Recovered/Resolved]
  - Therapeutic response decreased [Unknown]

NARRATIVE: CASE EVENT DATE: 20160902
